FAERS Safety Report 4472179-7 (Version None)
Quarter: 2004Q4

REPORT INFORMATION
  Report Type: 
  Country: None (occurrence: None)
  Receive Date: 20041008
  Receipt Date: 20040927
  Transmission Date: 20050328
  Serious: Yes (Disabling)
  Sender: FDA-Public Use
  Company Number: 200411536BCC

PATIENT
  Age: 49 Year
  Sex: Female

DRUGS (6)
  1. ALEVE [Suspect]
     Indication: BACK PAIN
     Dosage: ORAL
     Route: 048
     Dates: start: 20020101
  2. DIOVAN [Concomitant]
  3. PREDNISONE TAB [Concomitant]
  4. ZOLOFT [Concomitant]
  5. HYDROCHLOROTHIAZIDE [Concomitant]
  6. LEVOXYL [Concomitant]

REACTIONS (8)
  - BALANCE DISORDER [None]
  - DRUG INEFFECTIVE [None]
  - FATIGUE [None]
  - SUDDEN HEARING LOSS [None]
  - TEMPOROMANDIBULAR JOINT SYNDROME [None]
  - TINNITUS [None]
  - UTERINE LEIOMYOMA [None]
  - VERTIGO [None]
